FAERS Safety Report 7357847-1 (Version None)
Quarter: 2011Q1

REPORT INFORMATION
  Report Type: 
  Country: None (occurrence: None)
  Receive Date: 20110317
  Receipt Date: 20110309
  Transmission Date: 20110831
  Serious: Yes (Life-Threatening)
  Sender: FDA-Public Use
  Company Number: PL-BAXTER-2011BH005777

PATIENT
  Age: 8 Month
  Sex: Female
  Weight: 9 kg

DRUGS (2)
  1. GAMMAGARD LIQUID [Suspect]
     Indication: OFF LABEL USE
     Route: 042
     Dates: start: 20110308, end: 20110308
  2. GAMMAGARD LIQUID [Suspect]
     Indication: EVANS SYNDROME
     Route: 042
     Dates: start: 20110308, end: 20110308

REACTIONS (4)
  - URTICARIA [None]
  - CYANOSIS [None]
  - COUGH [None]
  - DYSPNOEA [None]
